FAERS Safety Report 5355504-4 (Version None)
Quarter: 2007Q2

REPORT INFORMATION
  Report Type: 
  Country: None (occurrence: None)
  Receive Date: 20070613
  Receipt Date: 20070605
  Transmission Date: 20071010
  Serious: Yes (Other)
  Sender: FDA-Public Use
  Company Number: PHEH2007US08325

PATIENT
  Sex: Female

DRUGS (6)
  1. ZELNORM [Suspect]
     Indication: IRRITABLE BOWEL SYNDROME
     Dosage: 6 MG, BID, ^ON AND OFF^
     Dates: end: 20061201
  2. ZELNORM [Suspect]
     Dosage: 6 MG, BID
     Dates: start: 20061201, end: 20070401
  3. BETAPACE [Concomitant]
     Dosage: UNK, UNK
  4. LANOXIN [Concomitant]
     Dosage: UNK, UNK
  5. LIPITOR [Concomitant]
     Dosage: UNK, UNK
  6. ZETIA [Concomitant]
     Dosage: UNK, UNK

REACTIONS (6)
  - ASTHENIA [None]
  - CHEST PAIN [None]
  - DYSPNOEA [None]
  - FIBRIN D DIMER INCREASED [None]
  - HYPERHIDROSIS [None]
  - PULMONARY EMBOLISM [None]
